FAERS Safety Report 23036545 (Version 4)
Quarter: 2024Q1

REPORT INFORMATION
  Report Type: Report from Study
  Country: US (occurrence: US)
  Receive Date: 20231006
  Receipt Date: 20240105
  Transmission Date: 20240410
  Serious: Yes (Hospitalization, Other)
  Sender: FDA-Public Use
  Company Number: US-002147023-NVSC2023US212310

PATIENT
  Age: 35 Year
  Sex: Female

DRUGS (2)
  1. KESIMPTA [Suspect]
     Active Substance: OFATUMUMAB
     Indication: Multiple sclerosis
     Dosage: UNK
     Route: 058
  2. KESIMPTA [Suspect]
     Active Substance: OFATUMUMAB
     Dosage: 0.4 ML, 28 DAYS
     Route: 058
     Dates: start: 20230707

REACTIONS (9)
  - Haematoma [Unknown]
  - Peripheral swelling [Recovered/Resolved]
  - Contusion [Unknown]
  - Tenderness [Unknown]
  - Panic attack [Unknown]
  - Anxiety [Not Recovered/Not Resolved]
  - Tunnel vision [Unknown]
  - Chest discomfort [Unknown]
  - Vision blurred [Unknown]

NARRATIVE: CASE EVENT DATE: 20230701
